FAERS Safety Report 8552278 (Version 7)
Quarter: 2012Q4

REPORT INFORMATION
  Report Type: 
  Country: FI (occurrence: FI)
  Receive Date: 20120508
  Receipt Date: 20121010
  Transmission Date: 20130627
  Serious: Yes (Death, Hospitalization)
  Sender: FDA-Public Use
  Company Number: FI-ELI_LILLY_AND_COMPANY-FI201204008971

PATIENT
  Age: 30 Year
  Sex: Male

DRUGS (11)
  1. ZYPREXA [Suspect]
     Indication: PSYCHOTIC DISORDER
     Dosage: 1 UNK, qd
     Route: 048
     Dates: start: 20090930, end: 201111
  2. ZYPREXA [Suspect]
     Dosage: 1 DF, unknown
     Route: 048
     Dates: start: 20111109, end: 20111114
  3. ZYPREXA [Suspect]
     Dosage: 5 mg, prn
     Route: 048
     Dates: start: 20111115
  4. ZYPADHERA [Suspect]
     Dosage: 300 mg, 2/M
     Route: 030
     Dates: start: 20111115
  5. RISPERIDONE [Concomitant]
     Indication: PSYCHOTIC DISORDER
     Dosage: 1 tablet 1-2 times daily
     Dates: start: 20120403
  6. LAMOTRIGINE [Concomitant]
     Dosage: UNK UNK, qd
     Route: 065
     Dates: start: 20100921, end: 201111
  7. LAMOTRIGINE [Concomitant]
     Dosage: 100 mg, qd
     Dates: end: 201201
  8. LAMOTRIGINE [Concomitant]
     Dosage: 200 mg, qd
     Route: 065
     Dates: start: 201201
  9. CLONAZEPAM [Concomitant]
     Indication: PSYCHOTIC DISORDER
     Dosage: 1 tablet 1-2 times daily
     Route: 065
     Dates: start: 20120403
  10. CITALOPRAM [Concomitant]
  11. ALCOHOL [Concomitant]

REACTIONS (7)
  - Accidental poisoning [Fatal]
  - Mania [Unknown]
  - Accidental overdose [Not Recovered/Not Resolved]
  - Hepatic steatosis [Unknown]
  - Intentional drug misuse [Unknown]
  - Feeling abnormal [Unknown]
  - Weight increased [Unknown]
